FAERS Safety Report 6623816-X (Version None)
Quarter: 2010Q1

REPORT INFORMATION
  Report Type: 
  Country: None (occurrence: None)
  Receive Date: 20100310
  Receipt Date: 20100225
  Transmission Date: 20100710
  Serious: Yes (Hospitalization, Other)
  Sender: FDA-Public Use
  Company Number: PHHY2010IT11898

PATIENT
  Age: 45 Year
  Sex: Female

DRUGS (5)
  1. CYCLOSPORINE [Suspect]
     Indication: ALOPECIA UNIVERSALIS
     Dosage: 150 MG, BID
     Dates: start: 20090101
  2. CYCLOSPORINE [Interacting]
     Dosage: 150 MG, QD
  3. CYCLOSPORINE [Interacting]
     Dosage: 200 MG, BID
     Dates: start: 20090301
  4. SIMVASTATIN [Interacting]
     Indication: BLOOD CHOLESTEROL INCREASED
     Dosage: 20 MG DAILY
     Dates: start: 20090701
  5. AZATHIOPRINE [Concomitant]
     Indication: ALOPECIA UNIVERSALIS
     Dosage: 50 MG, QD
     Dates: start: 20090101

REACTIONS (15)
  - ANURIA [None]
  - ASTHENIA [None]
  - BLOOD CHOLESTEROL INCREASED [None]
  - BLOOD LACTATE DEHYDROGENASE INCREASED [None]
  - CHROMATURIA [None]
  - DRUG INTERACTION [None]
  - DRUG PRESCRIBING ERROR [None]
  - HAEMODIALYSIS [None]
  - HEPATIC ENZYME INCREASED [None]
  - IMMUNOSUPPRESSANT DRUG LEVEL INCREASED [None]
  - MYALGIA [None]
  - MYOGLOBINURIA [None]
  - RENAL FAILURE ACUTE [None]
  - RENAL FAILURE CHRONIC [None]
  - URINE OUTPUT DECREASED [None]
